FAERS Safety Report 6903076-2 (Version None)
Quarter: 2010Q3

REPORT INFORMATION
  Report Type: 
  Country: None (occurrence: None)
  Receive Date: 20100803
  Receipt Date: 20080726
  Transmission Date: 20110219
  Serious: Yes (Other)
  Sender: FDA-Public Use
  Company Number: US-PFIZER INC-2008049443

PATIENT
  Sex: Female
  Weight: 120 kg

DRUGS (5)
  1. LYRICA [Suspect]
     Indication: ORAL PAIN
  2. LYRICA [Interacting]
     Indication: DYSKINESIA
  3. KLONOPIN [Interacting]
     Indication: ANXIETY
  4. ELAVIL [Interacting]
  5. ALL OTHER THERAPEUTIC PRODUCTS [Concomitant]

REACTIONS (8)
  - DRUG INTERACTION [None]
  - INSOMNIA [None]
  - MUSCULAR WEAKNESS [None]
  - ONYCHOCLASIS [None]
  - OROPHARYNGEAL PAIN [None]
  - TOOTH LOSS [None]
  - VISUAL IMPAIRMENT [None]
  - WEIGHT INCREASED [None]
